FAERS Safety Report 6853211-X (Version None)
Quarter: 2010Q3

REPORT INFORMATION
  Report Type: 
  Country: None (occurrence: None)
  Receive Date: 20100717
  Receipt Date: 20071204
  Transmission Date: 20110219
  Serious: No
  Sender: FDA-Public Use
  Company Number: US-PFIZER INC-2007103053

PATIENT
  Sex: Female
  Weight: 70.5 kg

DRUGS (5)
  1. CHANTIX [Suspect]
     Indication: SMOKING CESSATION THERAPY
     Dates: start: 20071126
  2. LYRICA [Concomitant]
  3. TOPAMAX [Concomitant]
  4. PRAVASTATIN [Concomitant]
  5. ADVIL LIQUI-GELS [Concomitant]

REACTIONS (7)
  - INAPPROPRIATE SCHEDULE OF DRUG ADMINISTRATION [None]
  - INSOMNIA [None]
  - LEGAL PROBLEM [None]
  - MUSCLE SPASMS [None]
  - NEURALGIA [None]
  - PAIN IN EXTREMITY [None]
  - UNEVALUABLE EVENT [None]
